FAERS Safety Report 7474759-3 (Version None)
Quarter: 2011Q2

REPORT INFORMATION
  Report Type: 
  Country: None (occurrence: None)
  Receive Date: 20110509
  Receipt Date: 20110509
  Transmission Date: 20111010
  Serious: Yes (Death)
  Sender: FDA-Public Use
  Company Number: None

PATIENT
  Age: 67 Year
  Sex: Female

DRUGS (6)
  1. FAMOTIDINE [Concomitant]
  2. REVLIMID [Suspect]
     Indication: MULTIPLE MYELOMA
     Dosage: REVLIMID 5 MG DAILY X21D/28D ORALLY
     Route: 048
     Dates: start: 20100701, end: 20100901
  3. REVLIMID [Suspect]
     Indication: MULTIPLE MYELOMA
     Dosage: REVLIMID 5 MG DAILY X21D/28D ORALLY
     Route: 048
     Dates: start: 20070301, end: 20070701
  4. LOVASTATIN [Concomitant]
  5. ACYCLOVIR [Concomitant]
  6. GABAPENTIN [Concomitant]

REACTIONS (4)
  - PANCYTOPENIA [None]
  - DISEASE PROGRESSION [None]
  - MULTIPLE MYELOMA [None]
  - BONE DISORDER [None]
